FAERS Safety Report 5229258-6 (Version None)
Quarter: 2007Q1

REPORT INFORMATION
  Report Type: 
  Country: None (occurrence: None)
  Receive Date: 20061201
  Receipt Date: 20060829
  Transmission Date: 20070707
  Serious: No
  Sender: FDA-Public Use
  Company Number: US200608001255

PATIENT
  Age: 50 Year
  Sex: Female

DRUGS (2)
  1. CYMBALTA [Suspect]
     Indication: PAIN
     Dosage: 20 MG, 2/D
     Dates: start: 20060708, end: 20060714
  2. ORAL CONTRACEPTIVE NOS (ORAL CONTRACEPTIVE NOS) [Concomitant]

REACTIONS (3)
  - INSOMNIA [None]
  - MIDDLE INSOMNIA [None]
  - PANIC REACTION [None]
